FAERS Safety Report 4483680-4 (Version None)
Quarter: 2004Q4

REPORT INFORMATION
  Report Type: 
  Country: None (occurrence: None)
  Receive Date: 20041022
  Receipt Date: 20041022
  Transmission Date: 20050328
  Serious: Yes (Hospitalization)
  Sender: FDA-Public Use
  Company Number: None

PATIENT
  Age: 75 Year
  Sex: Male
  Weight: 125 kg

DRUGS (7)
  1. TRISENOX [Suspect]
     Indication: MYELODYSPLASTIC SYNDROME
     Dosage: .30MG/KG  2 X WK X 28 WKS, INTRAVENOUS
     Route: 042
     Dates: start: 20040607, end: 20040903
  2. CLONIDONE [Concomitant]
  3. HYDROCHLOROTHIAZIDE [Concomitant]
  4. ASPIRIN [Concomitant]
  5. DARVOCET-N 100 [Concomitant]
  6. PRILOSEC [Concomitant]
  7. MAGNESIUM OXIDE [Concomitant]

REACTIONS (4)
  - ABSCESS ORAL [None]
  - GROIN ABSCESS [None]
  - MUCOSAL INFLAMMATION [None]
  - PYREXIA [None]
